FAERS Safety Report 20216204 (Version 1)
Quarter: 2021Q4

REPORT INFORMATION
  Report Type: Spontaneous
  Country: IE (occurrence: IE)
  Receive Date: 20211222
  Receipt Date: 20211222
  Transmission Date: 20220304
  Serious: Yes (Hospitalization, Other)
  Sender: FDA-Public Use
  Company Number: IE-NOVARTISPH-NVSC2021IE259962

PATIENT

DRUGS (2)
  1. BEOVU [Suspect]
     Active Substance: BROLUCIZUMAB-DBLL
     Indication: Product used for unknown indication
     Dosage: UNK
     Route: 065
     Dates: start: 20210928
  2. BEOVU [Suspect]
     Active Substance: BROLUCIZUMAB-DBLL
     Dosage: UNK
     Route: 065
     Dates: start: 20211026

REACTIONS (12)
  - Retinal ischaemia [Not Recovered/Not Resolved]
  - Retinal vasculitis [Not Recovered/Not Resolved]
  - Ocular hyperaemia [Unknown]
  - Eye irritation [Unknown]
  - Vision blurred [Unknown]
  - Eye pain [Unknown]
  - Visual impairment [Unknown]
  - Macular oedema [Unknown]
  - Retinal exudates [Unknown]
  - Retinal haemorrhage [Unknown]
  - Macular ischaemia [Unknown]
  - Anterior chamber flare [Unknown]

NARRATIVE: CASE EVENT DATE: 20211104
